FAERS Safety Report 13613580 (Version 1)
Quarter: 2017Q2

REPORT INFORMATION
  Report Type: Spontaneous
  Country: JO (occurrence: JO)
  Receive Date: 20170605
  Receipt Date: 20170605
  Transmission Date: 20170830
  Serious: Yes (Hospitalization)
  Sender: FDA-Public Use
  Company Number: JO-ASTRAZENECA-2017SE57841

PATIENT
  Age: 59 Year
  Sex: Male

DRUGS (2)
  1. FORXIGA [Suspect]
     Active Substance: DAPAGLIFLOZIN
     Route: 048
  2. INSULIN (MIXTARD) [Concomitant]

REACTIONS (1)
  - Diabetic ketoacidosis [Recovering/Resolving]
